FAERS Safety Report 5607502-0 (Version None)
Quarter: 2008Q1

REPORT INFORMATION
  Report Type: 
  Country: None (occurrence: None)
  Receive Date: 20080125
  Receipt Date: 20080110
  Transmission Date: 20080703
  Serious: Yes (Hospitalization)
  Sender: FDA-Public Use
  Company Number: 2007001711

PATIENT
  Age: 60 Year
  Sex: Male

DRUGS (16)
  1. ERLOTINIB (TABLET) [Suspect]
     Indication: COLON CANCER
     Dosage: 5 MG, QD, ORAL
     Route: 048
     Dates: start: 20061227
  2. BEVACIZUMAB (INJECTION FOR INFUSION) [Suspect]
     Dosage: 5MG/KG (5 MG/KG/Q2W), INTRAVENOUS
     Route: 042
     Dates: start: 20071213
  3. EVEROLIMUS (EVEROLIMUS) [Suspect]
     Dosage: 5 MG (75 MG, QD), ORAL
     Route: 048
     Dates: start: 20061213
  4. COUMADIN [Concomitant]
  5. INSULIN (INSULIN) [Concomitant]
  6. ASPIRIN [Concomitant]
  7. PRINIVIL [Concomitant]
  8. METFORMIN HCL [Concomitant]
  9. MULTIVITAMIN [Concomitant]
  10. PROCHLORPERAZINE MALEATE [Concomitant]
  11. MAGNESIUM HYDROXIDE (MAGNESIUM HYDROXIDE) [Concomitant]
  12. DEXAMETHASONE TAB [Concomitant]
  13. GLIPIZIDE [Concomitant]
  14. PRAVASTATIN [Concomitant]
  15. MEGACE [Concomitant]
  16. BACTRIM [Concomitant]

REACTIONS (1)
  - ANAEMIA [None]
